FAERS Safety Report 6264240-1 (Version None)
Quarter: 2009Q3

REPORT INFORMATION
  Report Type: 
  Country: None (occurrence: None)
  Receive Date: 20090710
  Receipt Date: 20090630
  Transmission Date: 20100115
  Serious: Yes (Hospitalization)
  Sender: FDA-Public Use
  Company Number: DE-ABBOTT-09P-062-0583623-00

PATIENT
  Age: 32 Year
  Sex: Male

DRUGS (10)
  1. AKINETON [Suspect]
     Indication: DRUG USE FOR UNKNOWN INDICATION
     Route: 048
     Dates: start: 20090216, end: 20090309
  2. SEROQUEL [Suspect]
     Indication: DRUG USE FOR UNKNOWN INDICATION
     Route: 048
     Dates: start: 20090216, end: 20090225
  3. SEROQUEL [Suspect]
     Route: 048
     Dates: start: 20090226, end: 20090305
  4. SEROQUEL [Suspect]
     Route: 048
     Dates: start: 20090306, end: 20090311
  5. LEPONEX [Suspect]
     Indication: DRUG USE FOR UNKNOWN INDICATION
     Dosage: 12.5-300MG
     Route: 048
     Dates: start: 20090217, end: 20090303
  6. LEPONEX [Suspect]
     Route: 048
     Dates: start: 20090304, end: 20090304
  7. LEPONEX [Suspect]
     Route: 048
     Dates: start: 20090305, end: 20090309
  8. HALDOL [Suspect]
     Indication: DRUG USE FOR UNKNOWN INDICATION
     Route: 048
     Dates: start: 20090213, end: 20090225
  9. HALDOL [Suspect]
     Route: 048
     Dates: start: 20090226, end: 20090302
  10. HALDOL [Suspect]
     Route: 048
     Dates: start: 20090303, end: 20090309

REACTIONS (1)
  - TACHYCARDIA [None]
